FAERS Safety Report 8058265-3 (Version None)
Quarter: 2012Q1

REPORT INFORMATION
  Report Type: 
  Country: None (occurrence: None)
  Receive Date: 20120112
  Receipt Date: 20120105
  Transmission Date: 20120608
  Serious: Yes (Other)
  Sender: FDA-Public Use
  Company Number: 2011SP059462

PATIENT
  Sex: Male

DRUGS (2)
  1. CORTICOSTEROIDS (CORTICOSTEROIDS) [Suspect]
     Indication: PRODUCT USED FOR UNKNOWN INDICATION
  2. NASONEX [Suspect]
     Indication: PRODUCT USED FOR UNKNOWN INDICATION

REACTIONS (1)
  - OSTEONECROSIS [None]
